FAERS Safety Report 6649746-5 (Version None)
Quarter: 2010Q1

REPORT INFORMATION
  Report Type: 
  Country: None (occurrence: None)
  Receive Date: 20100324
  Receipt Date: 20100324
  Transmission Date: 20100710
  Serious: Yes (Hospitalization)
  Sender: FDA-Public Use
  Company Number: None

PATIENT
  Age: 60 Year
  Sex: Male
  Weight: 70.45 kg

DRUGS (1)
  1. ACETAMINOPHEN AND CODEINE PHOSPHATE [Suspect]
     Dosage: 1 TAB QID PO
     Route: 048
     Dates: start: 20090706, end: 20091001

REACTIONS (3)
  - ALCOHOL ABUSE [None]
  - DRUG TOXICITY [None]
  - HEPATITIS [None]
